FAERS Safety Report 7579106-4 (Version None)
Quarter: 2011Q2

REPORT INFORMATION
  Report Type: 
  Country: None (occurrence: None)
  Receive Date: 20110628
  Receipt Date: 20110621
  Transmission Date: 20111010
  Serious: Yes (Hospitalization)
  Sender: FDA-Public Use
  Company Number: FR-PFIZER INC-FR-WYE-G05702910

PATIENT
  Age: 17 Year
  Sex: Male

DRUGS (5)
  1. TAMIFLU [Suspect]
     Indication: INFLUENZA
     Dosage: 75 MG, 1X/DAY
     Route: 048
     Dates: start: 20100114, end: 20100116
  2. ADVIL LIQUI-GELS [Suspect]
     Indication: INFLUENZA
     Dosage: UNK
     Route: 048
     Dates: start: 20100114, end: 20100101
  3. MINOCYCLINE HCL [Suspect]
     Indication: URETHRITIS
     Dosage: UNK
     Route: 048
     Dates: start: 20091230, end: 20100114
  4. ACETAMINOPHEN [Suspect]
     Indication: INFLUENZA
     Dosage: UNK
     Route: 048
     Dates: start: 20100114, end: 20100101
  5. HOMEOPATIC PREPARATION [Suspect]
     Indication: URETHRITIS
     Dosage: UNK
     Route: 048
     Dates: start: 20091230, end: 20100114

REACTIONS (1)
  - DRUG RASH WITH EOSINOPHILIA AND SYSTEMIC SYMPTOMS [None]
